FAERS Safety Report 12633998 (Version 1)
Quarter: 2016Q3

REPORT INFORMATION
  Report Type: Spontaneous
  Country: US (occurrence: None)
  Receive Date: 20160808
  Receipt Date: 20160808
  Transmission Date: 20161109
  Serious: No
  Sender: FDA-Public Use
  Company Number: None

PATIENT
  Age: 82 Year
  Sex: Female
  Weight: 75.3 kg

DRUGS (1)
  1. FEMARA [Suspect]
     Active Substance: LETROZOLE
     Dates: end: 20160802

REACTIONS (3)
  - Pulmonary mass [None]
  - Lymph nodes scan abnormal [None]
  - Non-Hodgkin^s lymphoma [None]

NARRATIVE: CASE EVENT DATE: 20160801
